FAERS Safety Report 6340068-9 (Version None)
Quarter: 2009Q3

REPORT INFORMATION
  Report Type: 
  Country: None (occurrence: None)
  Receive Date: 20090902
  Receipt Date: 20090825
  Transmission Date: 20100115
  Serious: Yes (Other)
  Sender: FDA-Public Use
  Company Number: TRP_06317_2009

PATIENT
  Sex: Female
  Weight: 76.2043 kg

DRUGS (8)
  1. INFERGEN [Suspect]
     Indication: HEPATITIS C
     Dosage: 15 ?G QD SUBCUTANEOUS
     Route: 058
     Dates: start: 20090701, end: 20090717
  2. RIBAVIRIN [Suspect]
     Indication: HEPATITIS C
     Dosage: 600 MG BID ORAL
     Route: 048
     Dates: start: 20090701, end: 20090717
  3. LEXAPRO [Concomitant]
  4. LAMICTAL [Concomitant]
  5. LORAZEPAM [Concomitant]
  6. AMLODIPINE [Concomitant]
  7. TRAZODONE [Concomitant]
  8. PRILOSEC [Concomitant]

REACTIONS (7)
  - DISTURBANCE IN ATTENTION [None]
  - HYPOPHAGIA [None]
  - INJECTION SITE RASH [None]
  - LOSS OF CONSCIOUSNESS [None]
  - MEMORY IMPAIRMENT [None]
  - NAUSEA [None]
  - WEIGHT DECREASED [None]
